FAERS Safety Report 18601873 (Version 1)
Quarter: 2020Q4

REPORT INFORMATION
  Report Type: Report from Study
  Country: AR (occurrence: AR)
  Receive Date: 20201210
  Receipt Date: 20201210
  Transmission Date: 20210114
  Serious: Yes (Hospitalization, Other)
  Sender: FDA-Public Use
  Company Number: AR-TAKEDA-2020TUS056309

PATIENT
  Age: 22 Year
  Sex: Male

DRUGS (1)
  1. IDURSULFASE [Suspect]
     Active Substance: IDURSULFASE
     Indication: PRODUCT USED FOR UNKNOWN INDICATION
     Dosage: 6 MILLIGRAM, 1/WEEK
     Route: 042

REACTIONS (4)
  - Pneumonia aspiration [Unknown]
  - Oxygen saturation abnormal [Unknown]
  - Pulmonary congestion [Unknown]
  - Body temperature increased [Unknown]

NARRATIVE: CASE EVENT DATE: 20201124
